FAERS Safety Report 11050537 (Version 1)
Quarter: 2015Q2

REPORT INFORMATION
  Report Type: Spontaneous
  Country: US (occurrence: None)
  Receive Date: 20150420
  Receipt Date: 20150420
  Transmission Date: 20150821
  Serious: No
  Sender: FDA-Public Use
  Company Number: None

PATIENT
  Sex: Female

DRUGS (1)
  1. HYDROCHLOROTHIAZIDE. [Suspect]
     Active Substance: HYDROCHLOROTHIAZIDE

REACTIONS (10)
  - Headache [None]
  - Blood potassium decreased [None]
  - Polyuria [None]
  - Palpitations [None]
  - Incorrect dose administered [None]
  - Drug dispensing error [None]
  - Dry skin [None]
  - Mood swings [None]
  - Muscle spasms [None]
  - Fatigue [None]

NARRATIVE: CASE EVENT DATE: 2015
